FAERS Safety Report 11588423 (Version 5)
Quarter: 2016Q1

REPORT INFORMATION
  Report Type: Report from Study
  Country: IT (occurrence: IT)
  Receive Date: 20151002
  Receipt Date: 20160217
  Transmission Date: 20160525
  Serious: Yes (Death, Hospitalization)
  Sender: FDA-Public Use
  Company Number: IT-ROCHE-1638157

PATIENT
  Age: 38 Year
  Sex: Female
  Weight: 68 kg

DRUGS (13)
  1. PACLITAXEL. [Suspect]
     Active Substance: PACLITAXEL
     Indication: CERVIX CANCER METASTATIC
     Route: 042
     Dates: start: 20150916
  2. SOLDESAM [Concomitant]
     Active Substance: DEXAMETHASONE
     Route: 065
     Dates: start: 20150916, end: 20150916
  3. URBASON [Concomitant]
     Active Substance: METHYLPREDNISOLONE
     Route: 065
     Dates: start: 20150916, end: 20150916
  4. CARBOPLATIN. [Suspect]
     Active Substance: CARBOPLATIN
     Indication: CERVIX CANCER METASTATIC
     Route: 042
     Dates: start: 20150916
  5. DELTACORTENE [Concomitant]
     Active Substance: PREDNISONE
     Route: 065
     Dates: start: 20150922, end: 20150924
  6. EMEND [Concomitant]
     Active Substance: APREPITANT
     Route: 065
     Dates: start: 20150916, end: 20150916
  7. BEVACIZUMAB [Suspect]
     Active Substance: BEVACIZUMAB
     Indication: CERVIX CANCER METASTATIC
     Dosage: START TIME FOR BEVACIZUMAB ADMINISTERED: 13:30, END TIME FOR BEVACIZUMAB ADMINISTERED: 15:00
     Route: 042
     Dates: start: 20150916
  8. MORFINA [Concomitant]
     Active Substance: MORPHINE HYDROCHLORIDE
     Route: 065
     Dates: start: 20150926, end: 20150926
  9. RANITIDINE [Concomitant]
     Active Substance: RANITIDINE\RANITIDINE HYDROCHLORIDE
     Dosage: STRENGTH:2FL
     Route: 065
     Dates: start: 20150916, end: 20150916
  10. CLEXANE [Concomitant]
     Active Substance: ENOXAPARIN SODIUM
     Route: 065
     Dates: start: 20150923, end: 20150924
  11. TRIMETON (ITALY) [Concomitant]
     Dosage: STRENGTH:1 FL
     Route: 065
     Dates: start: 20150916, end: 20150916
  12. LANSOPRAZOLO [Concomitant]
     Active Substance: LANSOPRAZOLE
     Route: 065
     Dates: start: 20150923, end: 20150924
  13. TARGIN [Concomitant]
     Active Substance: NALOXONE HYDROCHLORIDE\OXYCODONE HYDROCHLORIDE
     Dosage: 10MG/5MG
     Route: 065
     Dates: start: 20150924, end: 20150925

REACTIONS (1)
  - Pneumothorax [Fatal]

NARRATIVE: CASE EVENT DATE: 20150922
